FAERS Safety Report 10395581 (Version 1)
Quarter: 2014Q3

REPORT INFORMATION
  Report Type: Report from Study
  Country: US (occurrence: US)
  Receive Date: 20140820
  Receipt Date: 20140820
  Transmission Date: 20150326
  Serious: Yes (Other)
  Sender: FDA-Public Use
  Company Number: US-ROCHE-1451707

PATIENT
  Age: 49 Year
  Sex: Male

DRUGS (2)
  1. RITUXAN [Suspect]
     Active Substance: RITUXIMAB
     Indication: MICROSCOPIC POLYANGIITIS
  2. RITUXAN [Suspect]
     Active Substance: RITUXIMAB
     Indication: GRANULOMATOSIS WITH POLYANGIITIS
     Dosage: FREQUENCY : LESS THAN 14 DAYS INTERVAL.
     Route: 042

REACTIONS (7)
  - Weight decreased [Unknown]
  - Blood creatinine increased [Unknown]
  - Haematuria [Unknown]
  - Asthenia [Unknown]
  - Fatigue [Unknown]
  - Glomerulonephritis [Unknown]
  - Proteinuria [Unknown]
